FAERS Safety Report 7560172-7 (Version None)
Quarter: 2011Q2

REPORT INFORMATION
  Report Type: 
  Country: None (occurrence: None)
  Receive Date: 20110621
  Receipt Date: 20110613
  Transmission Date: 20111010
  Serious: Yes (Other)
  Sender: FDA-Public Use
  Company Number: A0927526A

PATIENT
  Age: 61 Year
  Sex: Female

DRUGS (10)
  1. TYKERB [Suspect]
     Indication: BREAST CANCER
     Route: 048
     Dates: start: 20110505
  2. ALFALFA [Concomitant]
  3. ATENOLOL [Concomitant]
  4. CYMBALTA [Concomitant]
  5. XANAX [Concomitant]
  6. METHYLIN SR [Concomitant]
  7. CALCIUM CARBONATE [Concomitant]
  8. VITAMIN D [Concomitant]
  9. SUPPLEMENT [Concomitant]
  10. NEXIUM [Concomitant]

REACTIONS (14)
  - DYSPHONIA [None]
  - HOT FLUSH [None]
  - SOMNOLENCE [None]
  - CROUP INFECTIOUS [None]
  - RASH [None]
  - NAUSEA [None]
  - VOMITING [None]
  - HEADACHE [None]
  - ABDOMINAL PAIN UPPER [None]
  - HAEMATOCHEZIA [None]
  - CONSTIPATION [None]
  - FATIGUE [None]
  - DIARRHOEA [None]
  - COUGH [None]
